FAERS Safety Report 6086767-8 (Version None)
Quarter: 2009Q1

REPORT INFORMATION
  Report Type: 
  Country: None (occurrence: None)
  Receive Date: 20090223
  Receipt Date: 20090211
  Transmission Date: 20090719
  Serious: Yes (Other)
  Sender: FDA-Public Use
  Company Number: ES-JNJFOC-20090203004

PATIENT
  Age: 30 Year
  Sex: Male

DRUGS (1)
  1. REMICADE [Suspect]
     Indication: PSORIASIS
     Dosage: ALSO STATED AS APPROXIMATELY FEB-2008
     Route: 042

REACTIONS (1)
  - BLADDER CANCER [None]
